FAERS Safety Report 14974562 (Version 1)
Quarter: 2018Q2

REPORT INFORMATION
  Report Type: Spontaneous
  Country: NL (occurrence: NL)
  Receive Date: 20180605
  Receipt Date: 20180605
  Transmission Date: 20180711
  Serious: Yes (Life-Threatening, Other)
  Sender: FDA-Public Use
  Company Number: NL-OXFORD PHARMACEUTICALS, LLC-2018OXF00061

PATIENT
  Age: 24 Year
  Sex: Male

DRUGS (6)
  1. CYCLOBENZAPRINE HYDROCHLORIDE. [Suspect]
     Active Substance: CYCLOBENZAPRINE HYDROCHLORIDE
     Route: 048
  2. ALCOHOL. [Suspect]
     Active Substance: ALCOHOL
     Route: 048
  3. PRAZOSIN. [Suspect]
     Active Substance: PRAZOSIN
     Route: 048
  4. QUETIAPINE. [Suspect]
     Active Substance: QUETIAPINE
     Route: 048
  5. DIVALPROEX [Suspect]
     Active Substance: DIVALPROEX SODIUM
     Route: 048
  6. ATENOLOL. [Suspect]
     Active Substance: ATENOLOL
     Route: 048

REACTIONS (4)
  - Aspiration [Recovered/Resolved]
  - Shock [Recovered/Resolved]
  - Acute respiratory distress syndrome [Recovered/Resolved]
  - Overdose [Recovered/Resolved]
